FAERS Safety Report 8298628-4 (Version None)
Quarter: 2012Q2

REPORT INFORMATION
  Report Type: 
  Country: None (occurrence: None)
  Receive Date: 20120417
  Receipt Date: 20120402
  Transmission Date: 20120825
  Serious: Yes (Other)
  Sender: FDA-Public Use
  Company Number: 2012PL000069

PATIENT
  Age: 51 Year
  Sex: Female

DRUGS (2)
  1. INTRON A [Suspect]
     Indication: PRODUCT USED FOR UNKNOWN INDICATION
     Dosage: 9 MIU;QD;SC
     Route: 058
     Dates: start: 20110205, end: 20110208
  2. PROLEUKIN [Suspect]
     Indication: PRODUCT USED FOR UNKNOWN INDICATION
     Dosage: 16 MIU;QD;IV
     Route: 042
     Dates: start: 20110205, end: 20110208

REACTIONS (3)
  - ERYTHEMA [None]
  - EYELID OEDEMA [None]
  - URTICARIA [None]
